FAERS Safety Report 17659047 (Version 2)
Quarter: 2020Q2

REPORT INFORMATION
  Report Type: Report from Study
  Country: None (occurrence: US)
  Receive Date: 20200413
  Receipt Date: 20200609
  Transmission Date: 20200713
  Serious: Yes (Hospitalization)
  Sender: FDA-Public Use
  Company Number: US-ABBVIE-20K-163-3358601-00

PATIENT
  Age: 66 Year
  Sex: Male
  Weight: 108.05 kg

DRUGS (1)
  1. HUMIRA [Suspect]
     Active Substance: ADALIMUMAB
     Indication: RHEUMATOID ARTHRITIS
     Route: 058

REACTIONS (4)
  - Hand fracture [Unknown]
  - Asthenia [Unknown]
  - Blood count abnormal [Unknown]
  - Fall [Unknown]

NARRATIVE: CASE EVENT DATE: 202003
